FAERS Safety Report 7030409-1 (Version None)
Quarter: 2010Q4

REPORT INFORMATION
  Report Type: 
  Country: None (occurrence: None)
  Receive Date: 20101001
  Receipt Date: 20100909
  Transmission Date: 20110411
  Serious: No
  Sender: FDA-Public Use
  Company Number: 2010-00797

PATIENT
  Age: 42 Year
  Sex: Female
  Weight: 61.2356 kg

DRUGS (2)
  1. ZICAM COLD REMEDY ORAL MIST [Suspect]
     Dosage: Q 3 HRS, 4 DAYS
     Dates: start: 20100903, end: 20100907
  2. FLUOXETINE [Concomitant]

REACTIONS (2)
  - AGEUSIA [None]
  - HYPOSMIA [None]
